FAERS Safety Report 15392458 (Version 1)
Quarter: 2018Q3

REPORT INFORMATION
  Report Type: Spontaneous
  Country: US (occurrence: US)
  Receive Date: 20180917
  Receipt Date: 20180917
  Transmission Date: 20181010
  Serious: No
  Sender: FDA-Public Use
  Company Number: US-GLAXOSMITHKLINE-US2018163233

PATIENT
  Age: 74 Year
  Sex: Male

DRUGS (1)
  1. NICODERM CQ [Suspect]
     Active Substance: NICOTINE
     Indication: SMOKING CESSATION THERAPY
     Dosage: 14 MG, UNK
     Dates: start: 20180906, end: 20180907

REACTIONS (2)
  - Application site erythema [Unknown]
  - Application site urticaria [Recovering/Resolving]

NARRATIVE: CASE EVENT DATE: 20180907
